FAERS Safety Report 13902932 (Version 2)
Quarter: 2019Q3

REPORT INFORMATION
  Report Type: Report from Study
  Country: CA (occurrence: CA)
  Receive Date: 20170824
  Receipt Date: 20190801
  Transmission Date: 20191004
  Serious: Yes (Other)
  Sender: FDA-Public Use
  Company Number: CA-ROCHE-1962794

PATIENT
  Age: 69 Year
  Sex: Male

DRUGS (22)
  1. AMLODIPINE [Concomitant]
     Active Substance: AMLODIPINE BESYLATE
     Indication: OFF LABEL USE
  2. ACTEMRA [Concomitant]
     Active Substance: TOCILIZUMAB
     Indication: RHEUMATOID ARTHRITIS
     Route: 058
     Dates: start: 20170615, end: 20170622
  3. MELATONIN [Concomitant]
     Active Substance: MELATONIN
     Indication: OFF LABEL USE
  4. METHYLPREDNISOLONE. [Concomitant]
     Active Substance: METHYLPREDNISOLONE
     Indication: OFF LABEL USE
     Dosage: ONGOING
     Route: 048
  5. RITUXAN [Suspect]
     Active Substance: RITUXIMAB
     Indication: RHEUMATOID ARTHRITIS
     Route: 042
     Dates: start: 20170711
  6. CRESTOR [Concomitant]
     Active Substance: ROSUVASTATIN CALCIUM
     Indication: OFF LABEL USE
  7. DIPHENHYDRAMINE HCL [Concomitant]
     Active Substance: DIPHENHYDRAMINE HYDROCHLORIDE
     Indication: OFF LABEL USE
     Dosage: ONGOING
     Route: 048
  8. CIPRO XL [Suspect]
     Active Substance: CIPROFLOXACIN\CIPROFLOXACIN HYDROCHLORIDE
     Indication: ANTIBIOTIC THERAPY
     Route: 065
  9. CIPRO XL [Suspect]
     Active Substance: CIPROFLOXACIN\CIPROFLOXACIN HYDROCHLORIDE
     Indication: OFF LABEL USE
  10. VITAMIN C [Concomitant]
     Active Substance: ASCORBIC ACID
     Indication: OFF LABEL USE
  11. PREDNISONE. [Concomitant]
     Active Substance: PREDNISONE
     Indication: OFF LABEL USE
  12. ACETAMINOPHEN. [Concomitant]
     Active Substance: ACETAMINOPHEN
     Indication: OFF LABEL USE
     Dosage: ONGOING
     Route: 048
  13. SYNTHROID [Concomitant]
     Active Substance: LEVOTHYROXINE SODIUM
     Indication: OFF LABEL USE
  14. MIRTAZAPINE. [Concomitant]
     Active Substance: MIRTAZAPINE
     Indication: OFF LABEL USE
  15. PANTOLOC [PANTOPRAZOLE] [Concomitant]
     Active Substance: PANTOPRAZOLE SODIUM
     Indication: OFF LABEL USE
  16. PREDNISONE. [Concomitant]
     Active Substance: PREDNISONE
     Indication: OFF LABEL USE
  17. BUPROPIONE [Concomitant]
     Active Substance: BUPROPION HYDROCHLORIDE
     Indication: OFF LABEL USE
  18. RITUXAN [Suspect]
     Active Substance: RITUXIMAB
     Indication: OFF LABEL USE
  19. ACTEMRA [Suspect]
     Active Substance: TOCILIZUMAB
     Indication: OFF LABEL USE
     Route: 058
     Dates: start: 20160622, end: 20170615
  20. FOLIC ACID. [Concomitant]
     Active Substance: FOLIC ACID
     Indication: OFF LABEL USE
  21. ACTEMRA [Suspect]
     Active Substance: TOCILIZUMAB
     Indication: RHEUMATOID ARTHRITIS
     Route: 058
     Dates: start: 20160622, end: 201705
  22. ACTEMRA [Concomitant]
     Active Substance: TOCILIZUMAB
     Indication: OFF LABEL USE

REACTIONS (13)
  - Ill-defined disorder [Unknown]
  - Nephrolithiasis [Unknown]
  - Blood glucose increased [Unknown]
  - Nausea [Unknown]
  - Cardiac murmur [Unknown]
  - Back pain [Recovered/Resolved]
  - Kidney infection [Unknown]
  - Heart rate irregular [Unknown]
  - Decreased appetite [Unknown]
  - Intentional product use issue [Unknown]
  - Dizziness [Unknown]
  - Cough [Unknown]
  - Off label use [Unknown]

NARRATIVE: CASE EVENT DATE: 20170711
